FAERS Safety Report 20228971 (Version 2)
Quarter: 2022Q1

REPORT INFORMATION
  Report Type: Spontaneous
  Country: CA (occurrence: CA)
  Receive Date: 20211225
  Receipt Date: 20220131
  Transmission Date: 20220423
  Serious: Yes (Death, Hospitalization, Other)
  Sender: FDA-Public Use
  Company Number: CA-AMGEN-CANSP2021203458

PATIENT
  Age: 21 Year
  Sex: Female

DRUGS (2)
  1. BLINATUMOMAB [Suspect]
     Active Substance: BLINATUMOMAB
     Indication: B precursor type acute leukaemia
     Dosage: UNK
     Route: 065
     Dates: start: 202002
  2. INOTUZUMAB OZOGAMICIN [Concomitant]
     Active Substance: INOTUZUMAB OZOGAMICIN

REACTIONS (5)
  - Hepatic enzyme increased [Unknown]
  - Death [Fatal]
  - Acute lymphocytic leukaemia recurrent [Unknown]
  - COVID-19 pneumonia [Recovered/Resolved]
  - Humoral immune defect [Unknown]

NARRATIVE: CASE EVENT DATE: 20200901
